FAERS Safety Report 13702443 (Version 1)
Quarter: 2017Q2

REPORT INFORMATION
  Report Type: Report from Study
  Country: US (occurrence: US)
  Receive Date: 20170629
  Receipt Date: 20170629
  Transmission Date: 20170830
  Serious: No
  Sender: FDA-Public Use
  Company Number: US-IPSEN BIOPHARMACEUTICALS, INC.-2016-02647

PATIENT
  Age: 8 Year
  Sex: Female
  Weight: 17.42 kg

DRUGS (6)
  1. INCRELEX [Suspect]
     Active Substance: MECASERMIN
     Dosage: NOT REPORTED
     Route: 065
     Dates: start: 201604
  2. CHILDREN^S MULTIVITAMIN [Concomitant]
  3. INCRELEX [Suspect]
     Active Substance: MECASERMIN
     Indication: PRODUCT USE IN UNAPPROVED INDICATION
     Dosage: NOT REPORTED
     Route: 065
     Dates: start: 20160316, end: 201603
  4. INCRELEX [Suspect]
     Active Substance: MECASERMIN
     Dosage: NOT REPORTED
     Route: 065
     Dates: start: 201603, end: 2016
  5. INCRELEX [Suspect]
     Active Substance: MECASERMIN
     Indication: BODY HEIGHT BELOW NORMAL
     Route: 065
     Dates: start: 20160313, end: 20160314
  6. ZYRTEC [Concomitant]
     Active Substance: CETIRIZINE HYDROCHLORIDE

REACTIONS (6)
  - Viral infection [Recovered/Resolved]
  - Injection site pain [Unknown]
  - Somnolence [Recovered/Resolved]
  - Headache [Unknown]
  - Pyrexia [Recovered/Resolved]
  - Vomiting [Recovered/Resolved]

NARRATIVE: CASE EVENT DATE: 201603
